FAERS Safety Report 5671493-7 (Version None)
Quarter: 2008Q1

REPORT INFORMATION
  Report Type: 
  Country: None (occurrence: None)
  Receive Date: 20080318
  Receipt Date: 20080304
  Transmission Date: 20080703
  Serious: Yes (Hospitalization)
  Sender: FDA-Public Use
  Company Number: US-KINGPHARMUSA00001-K200800277

PATIENT

DRUGS (10)
  1. ALTACE [Suspect]
     Dosage: 10 MG, (2X5MG), QD
     Route: 048
  2. HYDROCHLORZIDE [Suspect]
     Dosage: 10 MG, (2X5 MG),  QD
     Route: 048
  3. CITALOPRAM HYDROBROMIDE [Suspect]
     Dosage: 10 MG, QD
     Route: 048
     Dates: start: 20071023, end: 20071025
  4. ERGENYL [Concomitant]
     Dosage: 300 MG, UNK
     Route: 048
     Dates: start: 20071009, end: 20071016
  5. ERGENYL [Concomitant]
     Dosage: 300 MG - 750MG
     Route: 048
     Dates: start: 20071017, end: 20071029
  6. ERGENYL [Concomitant]
     Dosage: 600 MG, UNK
     Route: 048
     Dates: start: 20071030
  7. ZOPLICONE [Concomitant]
     Dosage: 7.5 MG, UNK
     Route: 048
     Dates: start: 20071009
  8. PROMETHAZIN [Concomitant]
     Dosage: 125 MG, UNK
     Route: 048
     Dates: start: 20071011, end: 20071025
  9. BISOPROLOL FUMARATE [Concomitant]
     Dosage: 2.5 MG, UNK
     Route: 048
  10. METHIONINE [Concomitant]
     Dosage: 1500 MG, UNK
     Route: 048
     Dates: start: 20071024, end: 20071026

REACTIONS (2)
  - HOSPITALISATION [None]
  - HYPONATRAEMIA [None]
